FAERS Safety Report 25254828 (Version 1)
Quarter: 2025Q2

REPORT INFORMATION
  Report Type: Spontaneous
  Country: ES (occurrence: ES)
  Receive Date: 20250430
  Receipt Date: 20250430
  Transmission Date: 20250716
  Serious: Yes (Other)
  Sender: CHEPLAPHARM
  Company Number: None

PATIENT
  Age: 81 Year
  Sex: Male

DRUGS (18)
  1. VALGANCICLOVIR [Suspect]
     Active Substance: VALGANCICLOVIR
     Indication: Renal transplant
     Dosage: 450 MG AFTER LUNCH EVERY OTHER DAY
     Route: 048
     Dates: start: 20241230, end: 20250214
  2. ENVARSUS XR [Concomitant]
     Active Substance: TACROLIMUS
     Dosage: 1 MG 1 HOUR BEFORE BREAKFAST?DAILY DOSE: 1 MILLIGRAM
  3. MYCOPHENOLATE SODIUM [Concomitant]
     Active Substance: MYCOPHENOLATE SODIUM
  4. PREDNISONE [Concomitant]
     Active Substance: PREDNISONE
     Dosage: 7.5 MG AT BREAKFAST?DAILY DOSE: 7.5 MILLIGRAM
  5. FAMOTIDINE [Concomitant]
     Active Substance: FAMOTIDINE
     Dosage: 40 MG AT BREAKFAST?DAILY DOSE: 40 MILLIGRAM
  6. OMEPRAZOLE [Concomitant]
     Active Substance: OMEPRAZOLE
  7. Hydropherol [Concomitant]
     Dosage: 3 DROPS AT BREAKFAST?DAILY DOSE: 3 DROP
  8. BISOPROLOL [Concomitant]
     Active Substance: BISOPROLOL
     Dosage: 2.5 MG AT BREAKFAST?DAILY DOSE: 2.5 MILLIGRAM
  9. LEVEMIR [Concomitant]
     Active Substance: INSULIN DETEMIR
     Dosage: 10 IU INSULIN AT BREAKFAST?DAILY DOSE: 10 IU (INTERNATIONAL UNIT)
  10. NOVORAPID [Concomitant]
     Active Substance: INSULIN ASPART
  11. NITROGLYCERIN [Concomitant]
     Active Substance: NITROGLYCERIN
     Dosage: 1 PATCH DAILY?DAILY DOSE: 1 DOSAGE FORM
  12. ASPIRIN [Concomitant]
     Active Substance: ASPIRIN
     Dosage: 100 MG AFTER MEAL?DAILY DOSE: 100 MILLIGRAM
     Dates: start: 20241113
  13. CHLORTHALIDONE [Concomitant]
     Active Substance: CHLORTHALIDONE
  14. ZOLPIDEM [Concomitant]
     Active Substance: ZOLPIDEM TARTRATE
     Dosage: 10 MG AT DINNER?DAILY DOSE: 10 MILLIGRAM
  15. MEROPENEM [Concomitant]
     Active Substance: MEROPENEM
     Indication: Pneumonia
  16. LINEZOLID [Concomitant]
     Active Substance: LINEZOLID
     Indication: Pneumonia
  17. ARANESP [Concomitant]
     Active Substance: DARBEPOETIN ALFA
     Route: 058
  18. MAGNESIUM [Concomitant]
     Active Substance: MAGNESIUM

REACTIONS (6)
  - Hepatitis cholestatic [Recovered/Resolved]
  - Cardiac failure congestive [Unknown]
  - Acute kidney injury [Unknown]
  - Thrombocytopenia [Unknown]
  - Aspergillus infection [Unknown]
  - Norovirus infection [Unknown]

NARRATIVE: CASE EVENT DATE: 20250214
